FAERS Safety Report 7087899-8 (Version None)
Quarter: 2010Q4

REPORT INFORMATION
  Report Type: 
  Country: None (occurrence: None)
  Receive Date: 20101108
  Receipt Date: 20101028
  Transmission Date: 20110411
  Serious: Yes (Hospitalization)
  Sender: FDA-Public Use
  Company Number: US-US-EMD SERONO, INC.-7001839

PATIENT
  Sex: Female
  Weight: 69 kg

DRUGS (3)
  1. REBIF [Suspect]
     Indication: MULTIPLE SCLEROSIS
     Route: 058
     Dates: start: 20040421
  2. CARDIZEM [Concomitant]
     Indication: HYPERTENSION
  3. TOPROL-XL [Concomitant]
     Indication: TACHYCARDIA

REACTIONS (4)
  - ARACHNOID CYST [None]
  - FALL [None]
  - PNEUMONIA [None]
  - UNEVALUABLE EVENT [None]
